FAERS Safety Report 25087147 (Version 1)
Quarter: 2025Q1

REPORT INFORMATION
  Report Type: Spontaneous
  Country: GB (occurrence: GB)
  Receive Date: 20250318
  Receipt Date: 20250318
  Transmission Date: 20250409
  Serious: Yes (Other)
  Sender: ROCHE
  Company Number: GB-ROCHE-10000154320

PATIENT

DRUGS (1)
  1. KADCYLA [Suspect]
     Active Substance: ADO-TRASTUZUMAB EMTANSINE
     Indication: Breast cancer metastatic
     Route: 050

REACTIONS (2)
  - Focal nodular hyperplasia [Not Recovered/Not Resolved]
  - Portal hypertension [Unknown]

NARRATIVE: CASE EVENT DATE: 20240712
